FAERS Safety Report 21232316 (Version 1)
Quarter: 2022Q3

REPORT INFORMATION
  Report Type: Spontaneous
  Country: CA (occurrence: CA)
  Receive Date: 20220819
  Receipt Date: 20220819
  Transmission Date: 20221026
  Serious: Yes (Death)
  Sender: FDA-Public Use
  Company Number: CA-PFIZER INC-2021534548

PATIENT
  Age: 64 Year
  Sex: Female

DRUGS (3)
  1. IBRANCE [Suspect]
     Active Substance: PALBOCICLIB
     Dosage: DAILY X 21 DAYS
     Route: 048
     Dates: start: 20180707
  2. IBRANCE [Suspect]
     Active Substance: PALBOCICLIB
     Dosage: DAILY X 21 DAYS
     Route: 048
  3. LETROZOLE [Concomitant]
     Active Substance: LETROZOLE
     Dosage: UNK

REACTIONS (2)
  - Death [Fatal]
  - Wound [Unknown]

NARRATIVE: CASE EVENT DATE: 20220521
